FAERS Safety Report 7440150-9 (Version None)
Quarter: 2011Q2

REPORT INFORMATION
  Report Type: 
  Country: None (occurrence: None)
  Receive Date: 20110427
  Receipt Date: 20110420
  Transmission Date: 20111010
  Serious: Yes (Other)
  Sender: FDA-Public Use
  Company Number: BR-ROCHE-772375

PATIENT
  Sex: Female
  Weight: 61 kg

DRUGS (8)
  1. TOCILIZUMAB [Suspect]
     Indication: RHEUMATOID ARTHRITIS
     Dosage: ROUTE: ENDOVENOUS
     Route: 050
     Dates: start: 20100801, end: 20100801
  2. TOCILIZUMAB [Suspect]
     Route: 050
     Dates: start: 20100901, end: 20100901
  3. TOCILIZUMAB [Suspect]
     Route: 050
     Dates: start: 20101101, end: 20101101
  4. TOCILIZUMAB [Suspect]
     Route: 050
     Dates: start: 20110101, end: 20110101
  5. CALCIUM [Concomitant]
  6. TOCILIZUMAB [Suspect]
     Route: 050
     Dates: start: 20110301
  7. TOCILIZUMAB [Suspect]
     Route: 050
     Dates: start: 20101001, end: 20101001
  8. TOCILIZUMAB [Suspect]
     Route: 050
     Dates: start: 20110201, end: 20110201

REACTIONS (2)
  - DEVICE DISLOCATION [None]
  - INSOMNIA [None]
